FAERS Safety Report 22182036 (Version 4)
Quarter: 2024Q1

REPORT INFORMATION
  Report Type: Spontaneous
  Country: US (occurrence: US)
  Receive Date: 20230406
  Receipt Date: 20240228
  Transmission Date: 20240409
  Serious: No
  Sender: FDA-Public Use
  Company Number: US-SA-SAC20230405001493

PATIENT
  Sex: Male

DRUGS (1)
  1. DUPIXENT [Suspect]
     Active Substance: DUPILUMAB
     Indication: Dermatitis atopic
     Dosage: 300 MG, QOW
     Route: 058

REACTIONS (9)
  - Swelling [Recovered/Resolved]
  - Dry mouth [Recovered/Resolved]
  - Skin lesion [Recovered/Resolved]
  - Oral pain [Recovered/Resolved]
  - Anxiety [Recovered/Resolved]
  - Heart rate increased [Recovered/Resolved]
  - White blood cell count decreased [Not Recovered/Not Resolved]
  - Vertigo positional [Recovered/Resolved]
  - Therapeutic response decreased [Unknown]
